FAERS Safety Report 6474168-X (Version None)
Quarter: 2009Q4

REPORT INFORMATION
  Report Type: 
  Country: None (occurrence: None)
  Receive Date: 20091204
  Receipt Date: 20091120
  Transmission Date: 20100525
  Serious: Yes (Other)
  Sender: FDA-Public Use
  Company Number: PHHY2009JP19474

PATIENT
  Sex: Female

DRUGS (5)
  1. GLEEVEC [Suspect]
     Indication: CHRONIC MYELOID LEUKAEMIA
     Dosage: 400 MG/DAY
     Route: 048
  2. GLEEVEC [Suspect]
     Dosage: 100 MG/DAY
  3. GLEEVEC [Suspect]
     Dosage: UNK
     Route: 048
     Dates: start: 20080401
  4. GLEEVEC [Suspect]
     Dosage: 600 MG, UNK
     Route: 048
     Dates: start: 20090119, end: 20090427
  5. PREDNISOLONE [Concomitant]

REACTIONS (9)
  - ANAEMIA [None]
  - CARDIAC FAILURE ACUTE [None]
  - CHROMOSOME ANALYSIS ABNORMAL [None]
  - DRUG INEFFECTIVE [None]
  - FACE OEDEMA [None]
  - LIVER DISORDER [None]
  - MALIGNANT NEOPLASM PROGRESSION [None]
  - OEDEMA PERIPHERAL [None]
  - PLEURAL EFFUSION [None]
